FAERS Safety Report 5903031-5 (Version None)
Quarter: 2008Q3

REPORT INFORMATION
  Report Type: 
  Country: None (occurrence: None)
  Receive Date: 20080930
  Receipt Date: 20080922
  Transmission Date: 20090109
  Serious: Yes (Hospitalization, Other)
  Sender: FDA-Public Use
  Company Number: US-AMGEN-QUU307232

PATIENT
  Sex: Male

DRUGS (1)
  1. ENBREL [Suspect]
     Indication: PSORIATIC ARTHROPATHY
     Route: 064
     Dates: start: 20040401

REACTIONS (3)
  - FOETAL DISTRESS SYNDROME [None]
  - HAEMANGIOMA CONGENITAL [None]
  - PREMATURE BABY [None]
